FAERS Safety Report 20951139 (Version 1)
Quarter: 2022Q2

REPORT INFORMATION
  Report Type: Spontaneous
  Country: US (occurrence: None)
  Receive Date: 20220610
  Receipt Date: 20220610
  Transmission Date: 20220721
  Serious: Yes (Hospitalization, Disabling)
  Sender: FDA-Public Use
  Company Number: None

PATIENT
  Age: 69 Year
  Sex: Female
  Weight: 112.05 kg

DRUGS (15)
  1. EYLEA [Suspect]
     Active Substance: AFLIBERCEPT
     Indication: Macular degeneration
     Route: 047
     Dates: start: 20220411, end: 20220411
  2. LEVOTHYROXINE [Concomitant]
     Active Substance: LEVOTHYROXINE
  3. WARFARIN [Concomitant]
     Active Substance: WARFARIN
  4. ZOLPIDEM [Concomitant]
     Active Substance: ZOLPIDEM TARTRATE
  5. pioglitizone [Concomitant]
  6. famotadine [Concomitant]
  7. LORATADINE [Concomitant]
     Active Substance: LORATADINE
  8. METOPROLOL [Concomitant]
     Active Substance: METOPROLOL
  9. SIMVASTATIN [Concomitant]
     Active Substance: SIMVASTATIN
  10. AMLODIPINE [Concomitant]
     Active Substance: AMLODIPINE BESYLATE
  11. FUROSEMIDE [Concomitant]
     Active Substance: FUROSEMIDE
  12. FLECAINIDE [Concomitant]
     Active Substance: FLECAINIDE
  13. ASPIRIN [Concomitant]
     Active Substance: ASPIRIN
  14. VITAMIN B12 [Concomitant]
     Active Substance: CYANOCOBALAMIN
  15. CALCIUM [Concomitant]
     Active Substance: CALCIUM

REACTIONS (4)
  - Conjunctival haemorrhage [None]
  - Deafness unilateral [None]
  - Vertigo [None]
  - Vomiting [None]

NARRATIVE: CASE EVENT DATE: 20220411
